FAERS Safety Report 17485917 (Version 1)
Quarter: 2020Q1

REPORT INFORMATION
  Report Type: Report from Study
  Country: None (occurrence: US)
  Receive Date: 20200303
  Receipt Date: 20200303
  Transmission Date: 20200409
  Serious: Yes (Hospitalization)
  Sender: FDA-Public Use
  Company Number: US-ABBVIE-19K-163-3144112-00

PATIENT
  Age: 61 Year
  Sex: Female

DRUGS (5)
  1. IMBRUVICA [Suspect]
     Active Substance: IBRUTINIB
     Indication: BREAST CANCER FEMALE
     Dosage: 420 MG, QD
     Route: 048
     Dates: start: 20190527
  2. IMBRUVICA [Suspect]
     Active Substance: IBRUTINIB
     Route: 048
  3. IMBRUVICA [Suspect]
     Active Substance: IBRUTINIB
     Route: 048
     Dates: start: 20190413
  4. IMBRUVICA [Suspect]
     Active Substance: IBRUTINIB
     Dosage: 420 MG, QD
     Route: 048
     Dates: start: 20190411
  5. IMBRUVICA [Suspect]
     Active Substance: IBRUTINIB
     Indication: LYMPHOCYTIC LEUKAEMIA
     Dosage: 420 MG, QD
     Route: 048
     Dates: start: 20190413

REACTIONS (18)
  - Obstruction [Unknown]
  - Disease progression [Unknown]
  - Ocular icterus [Unknown]
  - Muscle spasms [Not Recovered/Not Resolved]
  - Renal mass [Not Recovered/Not Resolved]
  - Joint swelling [Recovered/Resolved]
  - Off label use [Unknown]
  - Chromaturia [Unknown]
  - Hypophagia [Unknown]
  - Haemoglobin decreased [Not Recovered/Not Resolved]
  - Peripheral swelling [Recovered/Resolved]
  - Faeces discoloured [Unknown]
  - Abdominal pain upper [Unknown]
  - Fatigue [Unknown]
  - Nausea [Unknown]
  - Swelling face [Unknown]
  - Product use in unapproved indication [Unknown]
  - Asthenia [Unknown]

NARRATIVE: CASE EVENT DATE: 20190411
